FAERS Safety Report 8580063 (Version 2)
Quarter: 2014Q1

REPORT INFORMATION
  Report Type: Spontaneous
  Country: US (occurrence: None)
  Receive Date: 20120323
  Receipt Date: 20130305
  Transmission Date: 20141002
  Serious: Yes (Other)
  Sender: FDA-Public Use
  Company Number: 163-21880-11033202

PATIENT
  Age: 38 Year
  Sex: Male

DRUGS (5)
  1. REVLIMID (LENALIDOMIDE) (CAPSULES) [Suspect]
     Indication: PLASMA CELL MYELOMA
     Dosage: 25 MG, 1 IN 21 CYCLICAL, PO
     Route: 048
     Dates: start: 20110314
  2. DEXAMETHASONE (DEXAMETHASONE) [Concomitant]
  3. BACITRACIN [Concomitant]
  4. BACTRIM [Concomitant]
  5. AMOXICILLIN [Concomitant]

REACTIONS (2)
  - Toothache [None]
  - Tooth infection [None]
